FAERS Safety Report 4263901-3 (Version None)
Quarter: 2004Q1

REPORT INFORMATION
  Report Type: 
  Country: None (occurrence: None)
  Receive Date: 20040102
  Receipt Date: 20031210
  Transmission Date: 20041129
  Serious: Yes (Hospitalization)
  Sender: FDA-Public Use
  Company Number: EWC031237378

PATIENT
  Age: 52 Year
  Sex: Male

DRUGS (5)
  1. PERMAX [Suspect]
     Indication: PARKINSON'S DISEASE
     Dosage: 9 MG/DAY
     Dates: start: 19981111
  2. RHINOCORT [Concomitant]
  3. SEROXAT [Concomitant]
  4. SELEGILINE HCL [Concomitant]
  5. VOLCOLON (PSYLLIUM HYDROPHILIC MUCILLOID) [Concomitant]

REACTIONS (2)
  - MITRAL VALVE DISEASE [None]
  - PLEURISY [None]
